FAERS Safety Report 4365840-6 (Version None)
Quarter: 2004Q2

REPORT INFORMATION
  Report Type: 
  Country: None (occurrence: None)
  Receive Date: 20040524
  Receipt Date: 20040420
  Transmission Date: 20050107
  Serious: No
  Sender: FDA-Public Use
  Company Number: SU-2004-002300

PATIENT
  Age: 71 Year
  Sex: Female
  Weight: 52.1637 kg

DRUGS (5)
  1. BENICAR [Suspect]
     Indication: HYPERTENSION
     Dosage: 20 MG PO
     Route: 048
     Dates: start: 20040218
  2. TENORMIN [Concomitant]
  3. XANAX [Concomitant]
  4. ASPIRIN [Concomitant]
  5. VITAMINS NOS [Concomitant]

REACTIONS (3)
  - CONDITION AGGRAVATED [None]
  - LIMB DISCOMFORT [None]
  - VARICOSE VEIN [None]
